FAERS Safety Report 6344630-9 (Version None)
Quarter: 2009Q3

REPORT INFORMATION
  Report Type: 
  Country: None (occurrence: None)
  Receive Date: 20090903
  Receipt Date: 20090828
  Transmission Date: 20100115
  Serious: Yes (Life-Threatening, Other)
  Sender: FDA-Public Use
  Company Number: 366389

PATIENT
  Age: 72 Year
  Sex: Female
  Weight: 78.6 kg

DRUGS (10)
  1. AMIDATE [Suspect]
     Indication: ANAESTHESIA
     Dosage: 20 MG, INTRAVENOUS
     Route: 042
     Dates: start: 20090803, end: 20090803
  2. FENTANYL CITRATE [Suspect]
     Indication: ANAESTHESIA
     Dosage: PRN, INTRAVENOUS
     Route: 042
     Dates: start: 20090803, end: 20090803
  3. MIDAZOLAM HYDROCHLORIDE [Suspect]
     Indication: ANAESTHESIA
     Dosage: PRN, INTRAVENOUS
     Route: 042
     Dates: start: 20090803, end: 20090803
  4. QUELICIN [Suspect]
     Indication: ANAESTHESIA
  5. NIMBEX [Suspect]
     Indication: ANAESTHESIA
     Dosage: 20 MG, INTRAVENOUS
     Route: 042
     Dates: start: 20090803, end: 20090803
  6. (INVESTIGATIONAL DRUG) [Suspect]
     Indication: MYOCARDIAL REPERFUSION INJURY
     Dosage: 1.2 ML/MINUTE OR 72 CC
  7. HEPARIN SODIUM INJECTION (PANHFPARIN)(CDHR (HEPARIN SODIUM) [Concomitant]
  8. NITROGLYCERIN INJ, USP (GLYCERYL TRINITRATE) [Concomitant]
  9. ROBINUL [Concomitant]
  10. (TRANEXAMIC ACID) [Concomitant]

REACTIONS (2)
  - ANAESTHETIC COMPLICATION [None]
  - CARDIAC ARREST [None]
